FAERS Safety Report 10477440 (Version 1)
Quarter: 2014Q3

REPORT INFORMATION
  Report Type: Spontaneous
  Country: JP (occurrence: None)
  Receive Date: 20140923
  Receipt Date: 20140923
  Transmission Date: 20150326
  Serious: Yes (Hospitalization, Other)
  Sender: FDA-Public Use
  Company Number: INC-14-000231

PATIENT
  Age: 43 Year
  Sex: Male

DRUGS (2)
  1. ZOVIRAX [Concomitant]
     Active Substance: ACYCLOVIR
  2. CRAVIT [Suspect]
     Active Substance: LEVOFLOXACIN
     Indication: HERPES VIRUS INFECTION
     Route: 061
     Dates: start: 20140906

REACTIONS (1)
  - Anaphylactic shock [None]

NARRATIVE: CASE EVENT DATE: 20140916
